FAERS Safety Report 15214336 (Version 1)
Quarter: 2018Q3

REPORT INFORMATION
  Report Type: Report from Study
  Country: FR (occurrence: FR)
  Receive Date: 20180730
  Receipt Date: 20180730
  Transmission Date: 20181010
  Serious: Yes (Other)
  Sender: FDA-Public Use
  Company Number: FR-TEVA-2018-FR-932034

PATIENT
  Age: 76 Year
  Sex: Male

DRUGS (24)
  1. TACROLIMUS. [Suspect]
     Active Substance: TACROLIMUS
     Route: 065
     Dates: start: 20170210
  2. TACROLIMUS. [Suspect]
     Active Substance: TACROLIMUS
     Route: 065
     Dates: start: 20170106
  3. TACROLIMUS. [Suspect]
     Active Substance: TACROLIMUS
     Route: 065
     Dates: start: 20170214
  4. TACROLIMUS. [Suspect]
     Active Substance: TACROLIMUS
     Route: 065
     Dates: start: 20170114
  5. TACROLIMUS. [Suspect]
     Active Substance: TACROLIMUS
     Route: 065
     Dates: start: 20160408
  6. TACROLIMUS. [Suspect]
     Active Substance: TACROLIMUS
     Route: 065
     Dates: start: 20161227
  7. SOLU?MEDROL [Concomitant]
     Active Substance: METHYLPREDNISOLONE SODIUM SUCCINATE
     Indication: IMMUNOSUPPRESSION
     Dosage: 5 UNSECIFIED UNIT, ONCE DAILY
     Route: 065
     Dates: start: 20170108, end: 20170109
  8. TACROLIMUS. [Suspect]
     Active Substance: TACROLIMUS
     Route: 065
     Dates: start: 20161229
  9. TACROLIMUS. [Suspect]
     Active Substance: TACROLIMUS
     Route: 065
     Dates: start: 20161231
  10. TACROLIMUS. [Suspect]
     Active Substance: TACROLIMUS
     Route: 065
     Dates: start: 20170321
  11. CELLCEPT [Concomitant]
     Active Substance: MYCOPHENOLATE MOFETIL\MYCOPHENOLATE MOFETIL HYDROCHLORIDE
     Dosage: 1000 UNSPECIFIED UNIT, ONCE DAILY
     Route: 065
     Dates: start: 20161230, end: 20170126
  12. CORTANCYL [Concomitant]
     Active Substance: PREDNISONE
     Dosage: 5 UNSPECIFIED UNIT, ONCE DAILY
     Route: 065
     Dates: start: 20170110
  13. TACROLIMUS. [Suspect]
     Active Substance: TACROLIMUS
     Indication: RENAL TRANSPLANT
     Dosage: 5 MILLIGRAM DAILY;
     Route: 065
     Dates: start: 20170311
  14. TACROLIMUS. [Suspect]
     Active Substance: TACROLIMUS
     Route: 065
     Dates: start: 20170204
  15. CELLCEPT [Concomitant]
     Active Substance: MYCOPHENOLATE MOFETIL\MYCOPHENOLATE MOFETIL HYDROCHLORIDE
     Dosage: 500 UNSPECIFIED UNIT, ONCE DAILY
     Route: 065
     Dates: start: 20170127, end: 20170128
  16. CERTICAN [Concomitant]
     Active Substance: EVEROLIMUS
     Indication: IMMUNOSUPPRESSION
     Dosage: 1.25 UNSPECIFIED UNIT, ONCE DAILY
     Route: 065
     Dates: start: 20140703, end: 20161224
  17. TACROLIMUS. [Suspect]
     Active Substance: TACROLIMUS
     Route: 065
     Dates: start: 20170225
  18. CORTANCYL [Concomitant]
     Active Substance: PREDNISONE
     Dosage: 5 UNSPECIFIED UNIT, ONCE DAILY
     Route: 065
     Dates: start: 20161231, end: 20170107
  19. TACROLIMUS. [Suspect]
     Active Substance: TACROLIMUS
     Route: 065
     Dates: start: 20170103
  20. CELLCEPT [Concomitant]
     Active Substance: MYCOPHENOLATE MOFETIL\MYCOPHENOLATE MOFETIL HYDROCHLORIDE
     Indication: IMMUNOSUPPRESSION
     Dosage: 500 UNSPECIFIED UNIT ONCE DAILY
     Route: 065
     Dates: start: 20161229, end: 20161229
  21. CELLCEPT [Concomitant]
     Active Substance: MYCOPHENOLATE MOFETIL\MYCOPHENOLATE MOFETIL HYDROCHLORIDE
     Dosage: 1000 UNSPECIFIED UNIT, ONCE DAILY
     Route: 065
     Dates: start: 20170129
  22. CORTANCYL [Concomitant]
     Active Substance: PREDNISONE
     Dosage: 10 UNSPECIFIED UNIT ONCE DAILY
     Route: 065
     Dates: start: 20161225, end: 20161230
  23. CERTICAN [Concomitant]
     Active Substance: EVEROLIMUS
     Dosage: 0.5 UNSPECIFIED UNIT, ONCE DAILY
     Route: 065
     Dates: start: 20161225, end: 20161225
  24. CORTANCYL [Concomitant]
     Active Substance: PREDNISONE
     Indication: IMMUNOSUPPRESSION
     Dosage: 5 UNSPECIFIED UNIT, ONCE DAILY
     Route: 065
     Dates: start: 20111214, end: 20161224

REACTIONS (2)
  - Cytomegalovirus infection [Recovered/Resolved]
  - Renal tubular disorder [Not Recovered/Not Resolved]

NARRATIVE: CASE EVENT DATE: 20170113
